FAERS Safety Report 15961966 (Version 1)
Quarter: 2019Q1

REPORT INFORMATION
  Report Type: Report from Study
  Country: US (occurrence: US)
  Receive Date: 20190214
  Receipt Date: 20190214
  Transmission Date: 20190417
  Serious: No
  Sender: FDA-Public Use
  Company Number: PHEH2019US006479

PATIENT
  Sex: Female

DRUGS (1)
  1. COSENTYX [Suspect]
     Active Substance: SECUKINUMAB
     Indication: PSORIASIS
     Route: 058

REACTIONS (7)
  - Renal function test abnormal [Unknown]
  - Fatigue [Unknown]
  - Gastric disorder [Unknown]
  - Drug ineffective [Unknown]
  - Diarrhoea [Unknown]
  - Muscular weakness [Unknown]
  - Injection site pain [Unknown]
